FAERS Safety Report 5966545-8 (Version None)
Quarter: 2008Q4

REPORT INFORMATION
  Report Type: 
  Country: None (occurrence: None)
  Receive Date: 20081125
  Receipt Date: 20081118
  Transmission Date: 20090506
  Serious: Yes (Hospitalization)
  Sender: FDA-Public Use
  Company Number: US-KINGPHARMUSA00001-K200801344

PATIENT
  Age: 55 Year
  Sex: Female

DRUGS (4)
  1. ALTACE [Suspect]
     Dosage: 5 MG, QD
     Route: 048
  2. CARBIUM [Suspect]
     Dosage: 1000 MG, QD
     Route: 048
     Dates: end: 20080615
  3. AURORIX [Suspect]
     Dosage: 300 MG, QD
     Route: 048
     Dates: start: 20080528
  4. LAMICTAL [Concomitant]
     Dosage: 25 MG, UNK
     Route: 048
     Dates: start: 20080612

REACTIONS (5)
  - CONVULSION [None]
  - DISORIENTATION [None]
  - HYPONATRAEMIA [None]
  - PERSONALITY CHANGE [None]
  - SOPOR [None]
